FAERS Safety Report 6579457-6 (Version None)
Quarter: 2010Q1

REPORT INFORMATION
  Report Type: 
  Country: None (occurrence: None)
  Receive Date: 20100209
  Receipt Date: 20100209
  Transmission Date: 20100710
  Serious: Yes (Disabling)
  Sender: FDA-Public Use
  Company Number: None

PATIENT
  Age: 68 Year
  Sex: Male

DRUGS (1)
  1. DEXTROSE 5% AND POTASSIUM CHLORIDE 20MEQ [Suspect]

REACTIONS (3)
  - BLOOD POTASSIUM INCREASED [None]
  - BRADYCARDIA [None]
  - MEDICATION ERROR [None]
